FAERS Safety Report 5931175-0 (Version None)
Quarter: 2008Q4

REPORT INFORMATION
  Report Type: 
  Country: None (occurrence: None)
  Receive Date: 20081027
  Receipt Date: 20081020
  Transmission Date: 20090506
  Serious: Yes (Disabling)
  Sender: FDA-Public Use
  Company Number: PHHY2008JP04753

PATIENT
  Age: 59 Year
  Sex: Female

DRUGS (5)
  1. ZOMETA [Suspect]
     Indication: METASTASES TO BONE
     Dosage: 4 MG, QMO
     Route: 042
     Dates: start: 20061229, end: 20070709
  2. ZOMETA [Suspect]
     Indication: METASTASES TO LIVER
  3. AREDIA [Suspect]
     Dates: start: 20020510
  4. XELODA [Concomitant]
     Dosage: 2400 MG
     Route: 048
     Dates: start: 20061225, end: 20070408
  5. TS 1 [Concomitant]
     Dosage: 120 MG
     Route: 048
     Dates: start: 20070416

REACTIONS (5)
  - BONE DISORDER [None]
  - GINGIVAL PAIN [None]
  - OSTEONECROSIS [None]
  - SWELLING [None]
  - TOOTH EXTRACTION [None]
